FAERS Safety Report 22095254 (Version 1)
Quarter: 2023Q1

REPORT INFORMATION
  Report Type: Other
  Country: CA (occurrence: CA)
  Receive Date: 20230314
  Receipt Date: 20230314
  Transmission Date: 20230417
  Serious: Yes (Other)
  Sender: FDA-Public Use
  Company Number: CA-GLENMARK PHARMACEUTICALS-2023GMK079619

PATIENT

DRUGS (2)
  1. MUPIROCIN [Suspect]
     Active Substance: MUPIROCIN
     Indication: Sinusitis
     Dosage: 2 DOSAGE FORM, 3 EVERY 1 DAYS
     Route: 045
  2. MUPIROCIN [Suspect]
     Active Substance: MUPIROCIN
     Indication: Epistaxis

REACTIONS (5)
  - Rhinorrhoea [Unknown]
  - Eye discharge [Unknown]
  - Swelling of eyelid [Unknown]
  - Upper-airway cough syndrome [Unknown]
  - Product use in unapproved indication [Unknown]
